FAERS Safety Report 13554918 (Version 2)
Quarter: 2017Q2

REPORT INFORMATION
  Report Type: Spontaneous
  Country: US (occurrence: US)
  Receive Date: 20170517
  Receipt Date: 20170605
  Transmission Date: 20170830
  Serious: No
  Sender: FDA-Public Use
  Company Number: US-PFIZER INC-2017103227

PATIENT
  Age: 57 Year
  Sex: Male
  Weight: 64 kg

DRUGS (9)
  1. MIRTAZAPINE. [Concomitant]
     Active Substance: MIRTAZAPINE
     Dosage: UNK
     Dates: start: 201504
  2. LITHIUM. [Concomitant]
     Active Substance: LITHIUM
     Dosage: UNK
     Dates: start: 201504
  3. LYRICA [Suspect]
     Active Substance: PREGABALIN
     Indication: PAIN
     Dosage: 400MG IN MORNING AND 400MG IN THE AFTERNOON[400MG 2/ D]
     Dates: start: 201504
  4. TRAZODONE [Concomitant]
     Active Substance: TRAZODONE HYDROCHLORIDE
     Dosage: UNK
     Dates: start: 201504
  5. LYRICA [Suspect]
     Active Substance: PREGABALIN
     Indication: HEAD INJURY
     Dosage: 200MG IN THE MORNING AND 200MG IN THE AFTERNOON
     Dates: start: 201607
  6. ALBUTEROL /00139501/ [Concomitant]
     Active Substance: ALBUTEROL
     Dosage: UNK
     Dates: start: 201504
  7. LYRICA [Suspect]
     Active Substance: PREGABALIN
     Indication: NECK INJURY
  8. LYRICA [Suspect]
     Active Substance: PREGABALIN
     Indication: SPINAL CORD COMPRESSION
  9. LYRICA [Suspect]
     Active Substance: PREGABALIN
     Indication: BACK INJURY

REACTIONS (3)
  - Therapeutic response unexpected [Not Recovered/Not Resolved]
  - Pre-existing condition improved [Not Recovered/Not Resolved]
  - Prescribed overdose [Unknown]

NARRATIVE: CASE EVENT DATE: 201504
